FAERS Safety Report 19185439 (Version 1)
Quarter: 2021Q2

REPORT INFORMATION
  Report Type: Spontaneous
  Country: US (occurrence: US)
  Receive Date: 20210427
  Receipt Date: 20210427
  Transmission Date: 20210717
  Serious: Yes (Other)
  Sender: FDA-Public Use
  Company Number: US-MICRO LABS LIMITED-ML2021-01211

PATIENT
  Age: 27 Month
  Sex: Female

DRUGS (10)
  1. DIPHENHYDRAMINE HYDROCHLORIDE. [Suspect]
     Active Substance: DIPHENHYDRAMINE HYDROCHLORIDE
     Dosage: AT 6 YEARS OF AGE; AS PRE?MEDICATION
  2. HUMAN FIBRINOGEN CONCENTRATE [Concomitant]
     Indication: HAEMATOMA MUSCLE
     Dosage: 70MG/KG
  3. DIPHENHYDRAMINE HYDROCHLORIDE. [Suspect]
     Active Substance: DIPHENHYDRAMINE HYDROCHLORIDE
     Indication: PREMEDICATION
     Dosage: AT 27 MONTHS OF AGE; AS PRE?MEDICATION
  4. CRYOPRECIPITATE [Concomitant]
     Active Substance: CRYOPRECIPITATED ANTIHEMOPHILIC FACTOR (HUMAN)
     Dosage: 1 INFUSION OF 2 UNITS OF CRYOPRECIPITATE
  5. HYDROCORTISONE. [Suspect]
     Active Substance: HYDROCORTISONE
     Indication: PREMEDICATION
     Dosage: AT 27 MONTHS OF AGE; AS PRE?MEDICATION
  6. ONDANSETRON [Suspect]
     Active Substance: ONDANSETRON
     Indication: PREMEDICATION
     Dosage: AT 6 YEARS OF AGE
  7. ACETAMINOPHEN. [Suspect]
     Active Substance: ACETAMINOPHEN
     Indication: PREMEDICATION
     Dosage: AT 27 MONTHS OF AGE; AS PRE?MEDICATION
  8. ACETAMINOPHEN. [Suspect]
     Active Substance: ACETAMINOPHEN
     Dosage: AT 6 YEARS OF AGE; AS PRE?MEDICATION
  9. HYDROCORTISONE. [Suspect]
     Active Substance: HYDROCORTISONE
     Dosage: AT 6 YEARS OF AGE; AS PRE?MEDICATION
  10. RANITIDINE. [Suspect]
     Active Substance: RANITIDINE
     Indication: PREMEDICATION
     Dosage: AT 6 YEARS OF AGE

REACTIONS (1)
  - Drug ineffective [Unknown]
